FAERS Safety Report 9901444 (Version 1)
Quarter: 2014Q1

REPORT INFORMATION
  Report Type: Spontaneous
  Country: US (occurrence: US)
  Receive Date: 20140217
  Receipt Date: 20140217
  Transmission Date: 20141002
  Serious: Yes (Other)
  Sender: FDA-Public Use
  Company Number: US-PFIZER INC-2014044784

PATIENT
  Age: 53 Year
  Sex: Female
  Weight: 126.98 kg

DRUGS (12)
  1. LYRICA [Suspect]
     Indication: POST HERPETIC NEURALGIA
     Dosage: 75 MG, 2X/DAY
  2. AMITRIPTYLINE [Suspect]
     Indication: DEPRESSION
     Dosage: 25 MG, 1X/DAY
  3. VICODIN [Suspect]
     Dosage: UNK
  4. VITAMIN B12 [Concomitant]
     Dosage: UNK
  5. VITAMIN D3 [Concomitant]
     Dosage: UNK
  6. FISH OIL [Concomitant]
     Dosage: UNK
  7. PROBIOTICS [Concomitant]
     Dosage: UNK
  8. FLUOXETINE [Concomitant]
     Dosage: 40 MG, DAILY
  9. FIBERCON [Concomitant]
     Dosage: UNK, DAILY
  10. MIRALAX [Concomitant]
     Dosage: UNK, AS NEEDED
  11. PROPRANOLOL [Concomitant]
     Indication: HYPERTENSION
     Dosage: 10 MG, 2X/DAY
  12. PRAVASTATIN [Concomitant]
     Indication: BLOOD CHOLESTEROL INCREASED
     Dosage: 40 MG, 2X/DAY

REACTIONS (4)
  - Post-traumatic stress disorder [Unknown]
  - Fall [Unknown]
  - Dry mouth [Unknown]
  - Clumsiness [Unknown]
